FAERS Safety Report 9071561 (Version 1)
Quarter: 2013Q1

REPORT INFORMATION
  Report Type: Report from Study
  Country: US (occurrence: US)
  Receive Date: 20130129
  Receipt Date: 20130129
  Transmission Date: 20140127
  Serious: No
  Sender: FDA-Public Use
  Company Number: US-ABBOTT-12P-163-0926153-00

PATIENT
  Age: 54 Year
  Sex: Female

DRUGS (7)
  1. HUMIRA 40 MG/0.8 ML PEN [Suspect]
     Indication: CROHN^S DISEASE
     Dates: start: 201201
  2. PRISTIQ [Concomitant]
     Indication: ANXIETY
     Dosage: 50 MG EVERY DAY
  3. SEROQUEL [Concomitant]
     Indication: ANXIETY
     Dosage: 100 MG EVERY DAY
  4. DICYCLOMINE [Concomitant]
     Indication: PRODUCT USED FOR UNKNOWN INDICATION
  5. LIALDA [Concomitant]
     Indication: PRODUCT USED FOR UNKNOWN INDICATION
     Dosage: 1.2 MCG, 4 PILLS EVERY DAY
  6. TOPAMAX [Concomitant]
     Indication: HEADACHE
     Dosage: 150 MG EVERY DAY
  7. PROTONIX [Concomitant]
     Indication: PRODUCT USED FOR UNKNOWN INDICATION

REACTIONS (5)
  - Dry skin [Not Recovered/Not Resolved]
  - Skin wrinkling [Unknown]
  - Rash papular [Unknown]
  - Rash pruritic [Unknown]
  - Paraesthesia [Unknown]
